FAERS Safety Report 17440389 (Version 12)
Quarter: 2020Q4

REPORT INFORMATION
  Report Type: Spontaneous
  Country: US (occurrence: US)
  Receive Date: 20200220
  Receipt Date: 20201021
  Transmission Date: 20210113
  Serious: Yes (Hospitalization, Other)
  Sender: FDA-Public Use
  Company Number: US-ABBVIE-20K-163-3282645-00

PATIENT
  Sex: Female

DRUGS (1)
  1. CREON [Suspect]
     Active Substance: PANCRELIPASE AMYLASE\PANCRELIPASE LIPASE\PANCRELIPASE PROTEASE
     Indication: PANCREATIC FAILURE
     Route: 048

REACTIONS (13)
  - General symptom [Unknown]
  - Hypersomnia [Unknown]
  - Malaise [Recovered/Resolved]
  - Adverse drug reaction [Unknown]
  - Weight abnormal [Unknown]
  - Intentional product misuse [Unknown]
  - Neck surgery [Recovering/Resolving]
  - Anxiety [Unknown]
  - Depression [Unknown]
  - Pain [Unknown]
  - Hypothyroidism [Unknown]
  - Illness [Unknown]
  - Hunger [Unknown]

NARRATIVE: CASE EVENT DATE: 20200331
